FAERS Safety Report 25934712 (Version 1)
Quarter: 2025Q4

REPORT INFORMATION
  Report Type: Spontaneous
  Country: US (occurrence: US)
  Receive Date: 20251017
  Receipt Date: 20251017
  Transmission Date: 20260117
  Serious: Yes (Other)
  Sender: RANBAXY
  Company Number: US-SUN PHARMACEUTICAL INDUSTRIES LTD-2025R1-532030

PATIENT
  Age: 71 Year
  Sex: Female

DRUGS (2)
  1. CAPECITABINE [Suspect]
     Active Substance: CAPECITABINE
     Indication: Anal cancer
     Dosage: UNK (1,000 MG IN MORNING, 2,000 MG IN EVENING)
     Route: 048
  2. MITOMYCIN [Concomitant]
     Active Substance: MITOMYCIN
     Indication: Anal cancer
     Route: 065

REACTIONS (1)
  - Arteriospasm coronary [Recovered/Resolved]
